FAERS Safety Report 25866445 (Version 2)
Quarter: 2025Q4

REPORT INFORMATION
  Report Type: Spontaneous
  Country: EU (occurrence: EU)
  Receive Date: 20250930
  Receipt Date: 20251006
  Transmission Date: 20260118
  Serious: Yes (Other)
  Sender: BRISTOL-MYERS SQUIBB COMPANY
  Company Number: EU-BRISTOL-MYERS SQUIBB COMPANY-2025-132970

PATIENT
  Age: 82 Year
  Sex: Female
  Weight: 65 kg

DRUGS (1)
  1. ELIQUIS [Suspect]
     Active Substance: APIXABAN
     Indication: Atrial fibrillation
     Dates: start: 2025

REACTIONS (6)
  - Macular degeneration [Unknown]
  - Haemorrhage [Unknown]
  - Skin laceration [Unknown]
  - Fall [Unknown]
  - Skin abrasion [Unknown]
  - Blood creatinine abnormal [Unknown]
